FAERS Safety Report 6472965-8 (Version None)
Quarter: 2009Q4

REPORT INFORMATION
  Report Type: 
  Country: None (occurrence: None)
  Receive Date: 20091204
  Receipt Date: 20091126
  Transmission Date: 20100525
  Serious: Yes (Hospitalization, Other)
  Sender: FDA-Public Use
  Company Number: US-RANBAXY-2009US-29491

PATIENT

DRUGS (9)
  1. NITROFURANTOIN MONOHYDRATE/MACROCRYSTALS [Suspect]
     Indication: PROPHYLAXIS URINARY TRACT INFECTION
     Dosage: 100 MG, QD
     Route: 065
     Dates: start: 20080901
  2. NITROFURANTOIN MONOHYDRATE/MACROCRYSTALS [Suspect]
     Dosage: UNK, UNK
     Dates: start: 20081013
  3. NITROFURANTOIN MONOHYDRATE/MACROCRYSTALS [Suspect]
     Dosage: UNK, UNK
     Dates: start: 20081020
  4. CEFTRIAXONE [Suspect]
     Indication: PROPHYLAXIS URINARY TRACT INFECTION
     Route: 042
  5. TIGECYCLINE [Suspect]
     Indication: DIVERTICULITIS
     Route: 065
  6. TIGECYCLINE [Suspect]
     Indication: ABDOMINAL INFECTION
  7. TIGECYCLINE [Suspect]
     Indication: ABSCESS
  8. VANCOMYCIN [Suspect]
     Indication: DRUG USE FOR UNKNOWN INDICATION
     Route: 065
  9. AZTREONAM [Suspect]
     Indication: DRUG USE FOR UNKNOWN INDICATION
     Route: 065

REACTIONS (1)
  - SYSTEMIC INFLAMMATORY RESPONSE SYNDROME [None]
